FAERS Safety Report 17252591 (Version 1)
Quarter: 2020Q1

REPORT INFORMATION
  Report Type: Spontaneous
  Country: US (occurrence: US)
  Receive Date: 20200108
  Receipt Date: 20200108
  Transmission Date: 20200409
  Serious: No
  Sender: FDA-Public Use
  Company Number: None

PATIENT
  Age: 26 Year
  Sex: Female
  Weight: 51.26 kg

DRUGS (3)
  1. LEMTRADA [Concomitant]
     Active Substance: ALEMTUZUMAB
     Dates: start: 20200108
  2. LEMTRADA [Suspect]
     Active Substance: ALEMTUZUMAB
     Indication: MULTIPLE SCLEROSIS
     Dates: start: 20200108
  3. LEMTRADA [Suspect]
     Active Substance: ALEMTUZUMAB
     Indication: MULTIPLE SCLEROSIS
     Dates: start: 20200108

REACTIONS (1)
  - Urticaria [None]

NARRATIVE: CASE EVENT DATE: 20200108
